FAERS Safety Report 4845365-1 (Version None)
Quarter: 2005Q4

REPORT INFORMATION
  Report Type: 
  Country: None (occurrence: None)
  Receive Date: 20051125
  Receipt Date: 20051117
  Transmission Date: 20060501
  Serious: Yes (Other)
  Sender: FDA-Public Use
  Company Number: 2005BH002572

PATIENT
  Age: 69 Year
  Sex: Female

DRUGS (4)
  1. VANCOMYCIN [Suspect]
     Indication: STAPHYLOCOCCAL INFECTION
  2. ANTIBIOTICS [Concomitant]
  3. CEFAZOLIN SODIUM [Concomitant]
  4. AMPICILLIN SODIUM/SULBACTAM SODIUM [Concomitant]

REACTIONS (12)
  - BLISTER [None]
  - BLOOD ALBUMIN DECREASED [None]
  - DRUG INEFFECTIVE [None]
  - HAEMOGLOBIN DECREASED [None]
  - INFLAMMATION [None]
  - LINEAR IGA DISEASE [None]
  - LYMPHOCYTE PERCENTAGE DECREASED [None]
  - NEUTROPHIL PERCENTAGE INCREASED [None]
  - PLATELET COUNT INCREASED [None]
  - PROTEIN TOTAL INCREASED [None]
  - RED BLOOD CELL COUNT DECREASED [None]
  - WHITE BLOOD CELL COUNT INCREASED [None]
